FAERS Safety Report 25728312 (Version 1)
Quarter: 2025Q3

REPORT INFORMATION
  Report Type: Spontaneous
  Country: EU (occurrence: EU)
  Receive Date: 20250826
  Receipt Date: 20250826
  Transmission Date: 20251020
  Serious: Yes (Other)
  Sender: VERTEX
  Company Number: None

PATIENT
  Age: 7 Year
  Sex: Male
  Weight: 14 kg

DRUGS (2)
  1. ORKAMBI [Suspect]
     Active Substance: IVACAFTOR\LUMACAFTOR
     Indication: Cystic fibrosis
     Dosage: 1 SACHET (100 MG LUMACAFTOR/125 MG IVACAFTOR), QD
     Route: 048
     Dates: start: 20200709, end: 20201216
  2. ORKAMBI [Suspect]
     Active Substance: IVACAFTOR\LUMACAFTOR
     Dosage: 0.25 DOSAGE FORM OF SACHET (LUMACAFTOR/IVACAFTOR), QD
     Route: 048
     Dates: start: 20210621, end: 20210705

REACTIONS (1)
  - Hepatic cytolysis [Recovered/Resolved]

NARRATIVE: CASE EVENT DATE: 20200803
